FAERS Safety Report 10057444 (Version 1)
Quarter: 2014Q2

REPORT INFORMATION
  Report Type: Report from Study
  Country: US (occurrence: US)
  Receive Date: 20140403
  Receipt Date: 20140403
  Transmission Date: 20141212
  Serious: Yes (Disabling, Other)
  Sender: FDA-Public Use
  Company Number: PHEH2014US006521

PATIENT
  Sex: Male

DRUGS (5)
  1. EXFORGE HCT [Suspect]
     Dosage: UNK (160/5/25 MG), UNK
  2. KLONOPIN [Concomitant]
     Dosage: 3 MG, DAILY
  3. HYDROCODONE [Concomitant]
     Dosage: UNK (500/10), UNK
  4. ADDERALL [Concomitant]
     Dosage: 60 MG, DAILY
  5. NEURONTIN [Concomitant]
     Dosage: 1800 MG, DAILY

REACTIONS (2)
  - Glaucoma [Unknown]
  - Bipolar disorder [Unknown]
